FAERS Safety Report 8480268-5 (Version None)
Quarter: 2012Q2

REPORT INFORMATION
  Report Type: 
  Country: None (occurrence: None)
  Receive Date: 20120629
  Receipt Date: 20120619
  Transmission Date: 20120825
  Serious: No
  Sender: FDA-Public Use
  Company Number: US-ASTRAZENECA-2012SE41471

PATIENT
  Sex: Male

DRUGS (2)
  1. PROZAC [Concomitant]
     Indication: DEPRESSION
  2. SEROQUEL XR [Suspect]
     Indication: DEPRESSION
     Route: 048

REACTIONS (4)
  - DRUG INTOLERANCE [None]
  - FEELING DRUNK [None]
  - DRY MOUTH [None]
  - GAIT DISTURBANCE [None]
